FAERS Safety Report 5204617-6 (Version None)
Quarter: 2007Q1

REPORT INFORMATION
  Report Type: 
  Country: None (occurrence: None)
  Receive Date: 20070110
  Receipt Date: 20060524
  Transmission Date: 20070707
  Serious: No
  Sender: FDA-Public Use
  Company Number: US-BRISTOL-MYERS SQUIBB COMPANY-13388459

PATIENT
  Age: 28 Year
  Sex: Female
  Weight: 89 kg

DRUGS (6)
  1. ABILIFY [Suspect]
     Indication: BIPOLAR DISORDER
     Dosage: INITIATED AT 5 MG DAILY FOR 30 DAYS, INCREASED TO 10 MG DAILY FOR 3 WEEKS
     Dates: start: 20060101, end: 20060522
  2. WELLBUTRIN [Concomitant]
  3. KLONOPIN [Concomitant]
  4. INDERAL [Concomitant]
  5. LAMICTAL [Concomitant]
  6. ORTHO TRI-CYCLEN [Concomitant]

REACTIONS (3)
  - APHASIA [None]
  - IRRITABILITY [None]
  - TARDIVE DYSKINESIA [None]
